FAERS Safety Report 10464805 (Version 8)
Quarter: 2016Q2

REPORT INFORMATION
  Report Type: Spontaneous
  Country: BR (occurrence: BR)
  Receive Date: 20140919
  Receipt Date: 20160505
  Transmission Date: 20160815
  Serious: Yes (Hospitalization, Other)
  Sender: FDA-Public Use
  Company Number: BR-PFIZER INC-2014054903

PATIENT
  Age: 44 Year
  Sex: Male
  Weight: 98 kg

DRUGS (8)
  1. SUTENT [Suspect]
     Active Substance: SUNITINIB MALATE
     Indication: METASTATIC RENAL CELL CARCINOMA
     Dosage: 50 MG, CYCLIC (1 CAPSULE, 1X/DAY, CYCLIC 2X1))
     Route: 048
     Dates: start: 20140213
  2. SUTENT [Suspect]
     Active Substance: SUNITINIB MALATE
     Dosage: UNK
     Dates: end: 201501
  3. SUTENT [Suspect]
     Active Substance: SUNITINIB MALATE
     Dosage: UNK, CYCLIC
     Route: 048
     Dates: end: 201412
  4. OMEPRAZOLE. [Concomitant]
     Active Substance: OMEPRAZOLE
     Dosage: 20 MG, UNK
     Route: 048
  5. SUTENT [Suspect]
     Active Substance: SUNITINIB MALATE
     Dosage: 37.5 MG, CYCLIC (2 PER 1)
     Route: 048
     Dates: start: 201301
  6. SUTENT [Suspect]
     Active Substance: SUNITINIB MALATE
     Dosage: 50 MG, CYCLE 4X2
     Route: 048
  7. SUTENT [Suspect]
     Active Substance: SUNITINIB MALATE
     Dosage: 25 MG, CYCLIC (2 PER 1)
     Route: 048
  8. OMEPRAZOLE. [Concomitant]
     Active Substance: OMEPRAZOLE
     Dosage: 40 MG, UNK

REACTIONS (41)
  - Haemorrhoids [Unknown]
  - Acne [Unknown]
  - Axillary pain [Recovering/Resolving]
  - Dermal cyst [Unknown]
  - Blood cholesterol increased [Recovering/Resolving]
  - Inflammation [Recovering/Resolving]
  - Sinusitis [Not Recovered/Not Resolved]
  - Bone pain [Unknown]
  - Lung disorder [Unknown]
  - Diarrhoea haemorrhagic [Recovered/Resolved]
  - Abnormal faeces [Recovering/Resolving]
  - Influenza [Not Recovered/Not Resolved]
  - Throat irritation [Not Recovered/Not Resolved]
  - Ingrown hair [Unknown]
  - Blood triglycerides increased [Recovering/Resolving]
  - Liver disorder [Unknown]
  - Glossodynia [Unknown]
  - Skin irritation [Recovering/Resolving]
  - Nasal discomfort [Not Recovered/Not Resolved]
  - Tendon pain [Recovering/Resolving]
  - Headache [Recovered/Resolved]
  - Skin discolouration [Recovered/Resolved]
  - Rash pustular [Unknown]
  - Myalgia [Unknown]
  - Chromaturia [Unknown]
  - Disease progression [Unknown]
  - Haemorrhage [Unknown]
  - Abdominal pain [Unknown]
  - Pain in extremity [Unknown]
  - Vomiting [Recovered/Resolved]
  - Cholelithiasis [Unknown]
  - Haematochezia [Recovered/Resolved]
  - Diarrhoea [Recovering/Resolving]
  - Genital rash [Unknown]
  - Oropharyngeal pain [Not Recovered/Not Resolved]
  - Rhinitis [Not Recovered/Not Resolved]
  - Upper extremity mass [Unknown]
  - Hepatomegaly [Unknown]
  - Tongue ulceration [Unknown]
  - Hair colour changes [Recovered/Resolved]
  - Renal cell carcinoma [Unknown]

NARRATIVE: CASE EVENT DATE: 2014
